FAERS Safety Report 6329547-8 (Version None)
Quarter: 2009Q3

REPORT INFORMATION
  Report Type: 
  Country: None (occurrence: None)
  Receive Date: 20090825
  Receipt Date: 20090825
  Transmission Date: 20100115
  Serious: Yes (Hospitalization)
  Sender: FDA-Public Use
  Company Number: None

PATIENT
  Sex: Male
  Weight: 74.84 kg

DRUGS (1)
  1. ZOSYN [Suspect]
     Indication: OSTEOMYELITIS
     Dosage: 4.5 GRAMS EVERY 8 HOURS IV DRIP 21 DOESES / 7 DAYS
     Route: 041
     Dates: start: 20090708, end: 20090715

REACTIONS (1)
  - TUBULOINTERSTITIAL NEPHRITIS [None]
